FAERS Safety Report 24626033 (Version 1)
Quarter: 2024Q4

REPORT INFORMATION
  Report Type: Spontaneous
  Country: FR (occurrence: FR)
  Receive Date: 20241115
  Receipt Date: 20241115
  Transmission Date: 20250115
  Serious: Yes (Other)
  Sender: TEVA
  Company Number: None

PATIENT
  Age: 19 Year
  Sex: Female

DRUGS (1)
  1. HYDROXYZINE [Suspect]
     Active Substance: HYDROXYZINE HYDROCHLORIDE
     Indication: Product used for unknown indication
     Dosage: NP; HYDROXYZINE (CHLORHYDRATE D^)
     Route: 065
     Dates: start: 20230902, end: 20230902

REACTIONS (2)
  - Somnolence [Recovered/Resolved with Sequelae]
  - Victim of chemical submission [Recovered/Resolved with Sequelae]

NARRATIVE: CASE EVENT DATE: 20230902
